FAERS Safety Report 6520745-7 (Version None)
Quarter: 2009Q4

REPORT INFORMATION
  Report Type: 
  Country: None (occurrence: None)
  Receive Date: 20091229
  Receipt Date: 20091223
  Transmission Date: 20100525
  Serious: Yes (Life-Threatening, Hospitalization, Other)
  Sender: FDA-Public Use
  Company Number: GXKR2009GB09250

PATIENT
  Age: 22 Year
  Sex: Male

DRUGS (5)
  1. ONDANSETRON [Suspect]
     Indication: PROCEDURAL NAUSEA
     Dosage: 4 MG, UNK
     Route: 042
     Dates: start: 20090805, end: 20090805
  2. SODIUM LACTATE COMPOUND INJECTION [Concomitant]
     Route: 065
  3. FENTANYL-100 [Concomitant]
     Indication: ANAESTHESIA
     Dosage: UNK
     Route: 065
     Dates: start: 20090805
  4. MORPHINE [Concomitant]
     Route: 065
  5. PROPOFOL [Concomitant]
     Indication: ANAESTHESIA
     Dosage: UNK
     Route: 065
     Dates: start: 20090805

REACTIONS (8)
  - ABNORMAL BEHAVIOUR [None]
  - CONVULSION [None]
  - ENDOTRACHEAL INTUBATION [None]
  - HYPERSENSITIVITY [None]
  - INCOHERENT [None]
  - LOSS OF CONSCIOUSNESS [None]
  - PRURITUS [None]
  - RASH MACULAR [None]
